FAERS Safety Report 13958866 (Version 1)
Quarter: 2017Q3

REPORT INFORMATION
  Report Type: Spontaneous
  Country: US (occurrence: US)
  Receive Date: 20170911
  Receipt Date: 20170911
  Transmission Date: 20171128
  Serious: Yes (Other)
  Sender: FDA-Public Use
  Company Number: US-BAUSCH-BL-2017-026223

PATIENT
  Sex: Female
  Weight: 75.82 kg

DRUGS (9)
  1. CELEBREX [Concomitant]
     Active Substance: CELECOXIB
     Indication: PRODUCT USED FOR UNKNOWN INDICATION
  2. ALLEGRA [Concomitant]
     Active Substance: FEXOFENADINE HYDROCHLORIDE
     Indication: PRODUCT USED FOR UNKNOWN INDICATION
  3. FLUTICASONE. [Concomitant]
     Active Substance: FLUTICASONE
     Indication: PRODUCT USED FOR UNKNOWN INDICATION
  4. SINGULAIR [Concomitant]
     Active Substance: MONTELUKAST SODIUM
     Indication: PRODUCT USED FOR UNKNOWN INDICATION
  5. APRISO [Suspect]
     Active Substance: MESALAMINE
     Indication: GASTROINTESTINAL DISORDER
     Dosage: STARTED YEARS AGO
     Route: 048
  6. KRILL OIL [Concomitant]
     Active Substance: DIETARY SUPPLEMENT
     Indication: PRODUCT USED FOR UNKNOWN INDICATION
  7. APRISO [Suspect]
     Active Substance: MESALAMINE
     Dosage: CURRENTLY TAKING TWO CAPSULES EVERY MORNING
     Route: 048
  8. ZYRTEC [Concomitant]
     Active Substance: CETIRIZINE HYDROCHLORIDE
     Indication: PRODUCT USED FOR UNKNOWN INDICATION
  9. MAGNESIUM [Concomitant]
     Active Substance: MAGNESIUM
     Indication: PRODUCT USED FOR UNKNOWN INDICATION

REACTIONS (6)
  - Shoulder operation [Unknown]
  - Spinal laminectomy [Unknown]
  - Spinal fusion surgery [Unknown]
  - Diarrhoea [Unknown]
  - Off label use [Not Recovered/Not Resolved]
  - Foot operation [Unknown]
